FAERS Safety Report 16116861 (Version 1)
Quarter: 2019Q1

REPORT INFORMATION
  Report Type: Spontaneous
  Country: ES (occurrence: ES)
  Receive Date: 20190326
  Receipt Date: 20190326
  Transmission Date: 20190418
  Serious: Yes (Other)
  Sender: FDA-Public Use
  Company Number: ES-TEVA-2019-ES-1028003

PATIENT
  Age: 52 Year
  Sex: Female

DRUGS (3)
  1. ESOMEPRAZOL (1172A) [Suspect]
     Active Substance: ESOMEPRAZOLE
     Route: 048
     Dates: start: 20190219
  2. PYLERA 140 MG/125 MG/125 MG CAPSULAS , 120 C?PSULAS [Interacting]
     Active Substance: BISMUTH SUBCITRATE POTASSIUM\METRONIDAZOLE\TETRACYCLINE HYDROCHLORIDE
     Indication: HELICOBACTER INFECTION
     Route: 048
     Dates: start: 20190219
  3. OPTOVITE B12 1.000 MICROGRAMOS SOLUCI?N INYECTABLE , 5 AMPOLLAS DE 2 M [Concomitant]
     Active Substance: CYANOCOBALAMIN
     Route: 030

REACTIONS (5)
  - Abdominal pain upper [Unknown]
  - Headache [Unknown]
  - Faeces pale [Unknown]
  - Choluria [Unknown]
  - Drug interaction [Unknown]

NARRATIVE: CASE EVENT DATE: 20190222
